FAERS Safety Report 18802918 (Version 1)
Quarter: 2021Q1

REPORT INFORMATION
  Report Type: Spontaneous
  Country: US (occurrence: US)
  Receive Date: 20210129
  Receipt Date: 20210129
  Transmission Date: 20210419
  Serious: No
  Sender: FDA-Public Use
  Company Number: US-AMGEN-USASP2021014073

PATIENT
  Age: 53 Year
  Sex: Female

DRUGS (10)
  1. OTEZLA [Suspect]
     Active Substance: APREMILAST
     Dosage: 30 MILLIGRAM, QD
     Route: 048
     Dates: start: 20201230
  2. BYSTOLIC [Concomitant]
     Active Substance: NEBIVOLOL HYDROCHLORIDE
     Dosage: UNK
     Route: 065
  3. PRISTIQ EXTENDED?RELEASE [Concomitant]
     Active Substance: DESVENLAFAXINE SUCCINATE
     Dosage: UNK
     Route: 065
  4. MELATONIN [Concomitant]
     Active Substance: MELATONIN
     Dosage: UNK
     Route: 065
  5. VALPROIC ACID. [Concomitant]
     Active Substance: VALPROIC ACID
     Dosage: UNK
     Route: 065
  6. DIAZEPAM. [Concomitant]
     Active Substance: DIAZEPAM
     Dosage: UNK
     Route: 065
  7. RESPAIRE [Concomitant]
     Dosage: UNK
     Route: 065
  8. OMEPRAZOLE. [Concomitant]
     Active Substance: OMEPRAZOLE
     Dosage: UNK
     Route: 065
  9. OTEZLA [Suspect]
     Active Substance: APREMILAST
     Indication: PSORIATIC ARTHROPATHY
     Dosage: 30 MILLIGRAM, BID
     Route: 048
     Dates: start: 20140718
  10. TYLENOL COLD [CHLORPHENAMINE MALEATE;PARACETAMOL;PSEUDOEPHEDRINE HYDRO [Concomitant]
     Dosage: UNK
     Route: 065

REACTIONS (1)
  - Intentional product misuse [Unknown]

NARRATIVE: CASE EVENT DATE: 20201230
